FAERS Safety Report 11896256 (Version 1)
Quarter: 2016Q1

REPORT INFORMATION
  Report Type: Spontaneous
  Country: US (occurrence: US)
  Receive Date: 20160107
  Receipt Date: 20160107
  Transmission Date: 20160526
  Serious: No
  Sender: FDA-Public Use
  Company Number: US-ROCHE-1537811

PATIENT
  Sex: Female

DRUGS (12)
  1. PEPCID [Concomitant]
     Active Substance: FAMOTIDINE
  2. RESTORIL (UNITED STATES) [Concomitant]
  3. PLAVIX [Concomitant]
     Active Substance: CLOPIDOGREL BISULFATE
  4. ZOMIG [Concomitant]
     Active Substance: ZOLMITRIPTAN
  5. TOPAMAX [Concomitant]
     Active Substance: TOPIRAMATE
  6. PROCHLORPERAZINE. [Concomitant]
     Active Substance: PROCHLORPERAZINE
  7. DOCUSATE [Concomitant]
     Active Substance: DOCUSATE
  8. METANX [Concomitant]
     Active Substance: LEVOMEFOLATE CALCIUM\METHYLCOBALAMIN\PYRIDOXAL PHOSPHATE ANHYDROUS
  9. VICON C [Concomitant]
  10. RITUXAN [Suspect]
     Active Substance: RITUXIMAB
     Indication: MANTLE CELL LYMPHOMA
     Dosage: FOR APPROXIMATELY 20 WEEKS
     Route: 042
  11. ASPIRIN. [Concomitant]
     Active Substance: ASPIRIN
  12. LOVASTATIN. [Concomitant]
     Active Substance: LOVASTATIN

REACTIONS (1)
  - Paraesthesia [Unknown]
